FAERS Safety Report 6680652-6 (Version None)
Quarter: 2010Q2

REPORT INFORMATION
  Report Type: 
  Country: None (occurrence: None)
  Receive Date: 20100414
  Receipt Date: 20100402
  Transmission Date: 20101027
  Serious: Yes (Other)
  Sender: FDA-Public Use
  Company Number: JP-PFIZER INC-2010039811

PATIENT
  Age: 71 Year
  Sex: Female

DRUGS (4)
  1. SOLANAX [Suspect]
     Indication: SLEEP DISORDER
     Dosage: 2.4 MG, 1X/DAY
     Route: 048
     Dates: start: 20100320
  2. CELESTAMINE TAB [Suspect]
     Indication: RHINITIS ALLERGIC
     Dosage: 5 MG, 1X/DAY
     Route: 048
     Dates: start: 20090320
  3. ADALAT CC [Concomitant]
     Dates: start: 20060401
  4. CANDESARTAN CILEXETIL [Concomitant]
     Dates: start: 20070101

REACTIONS (1)
  - FACE OEDEMA [None]
